FAERS Safety Report 22064681 (Version 7)
Quarter: 2025Q3

REPORT INFORMATION
  Report Type: Report from Study
  Country: US (occurrence: US)
  Receive Date: 20230306
  Receipt Date: 20250811
  Transmission Date: 20251020
  Serious: Yes (Death, Hospitalization, Other)
  Sender: ABBVIE
  Company Number: US-ABBVIE-4327052

PATIENT
  Age: 68 Year
  Sex: Female
  Weight: 76 kg

DRUGS (20)
  1. VENCLEXTA [Suspect]
     Active Substance: VENETOCLAX
     Indication: Chronic lymphocytic leukaemia
     Dosage: FORM STRENGTH 100 MILLIGRAM, C1D6
     Route: 048
     Dates: start: 20210914
  2. VENCLEXTA [Suspect]
     Active Substance: VENETOCLAX
     Indication: Chronic lymphocytic leukaemia
     Dosage: FORM STRENGTH 100 MILLIGRAM
     Route: 048
     Dates: start: 20210726, end: 20210807
  3. VENCLEXTA [Suspect]
     Active Substance: VENETOCLAX
     Indication: Chronic lymphocytic leukaemia
     Route: 048
  4. VENCLEXTA [Suspect]
     Active Substance: VENETOCLAX
     Indication: Chronic lymphocytic leukaemia
     Dosage: 20-}50-}100-}200 MG?FORM STRENGTH 100 MILLIGRAM
     Route: 048
     Dates: start: 20210629, end: 20210725
  5. Vita b12 [Concomitant]
     Indication: Product used for unknown indication
     Route: 048
  6. ESCITALOPRAM OXALATE [Concomitant]
     Active Substance: ESCITALOPRAM OXALATE
     Indication: Product used for unknown indication
     Route: 048
  7. LASIX [Concomitant]
     Active Substance: FUROSEMIDE
     Indication: Atrial fibrillation
  8. ELIQUIS [Concomitant]
     Active Substance: APIXABAN
     Indication: Atrial fibrillation
     Route: 048
  9. GRANIX [Concomitant]
     Active Substance: TBO-FILGRASTIM
     Indication: Product used for unknown indication
     Route: 058
     Dates: start: 20210503, end: 20210508
  10. METOPROLOL SUCCINATE [Concomitant]
     Active Substance: METOPROLOL SUCCINATE
     Indication: Product used for unknown indication
     Route: 048
  11. DIGOXIN [Concomitant]
     Active Substance: DIGOXIN
     Indication: Atrial fibrillation
     Route: 048
  12. VITAMIN D3 [Concomitant]
     Active Substance: CHOLECALCIFEROL
     Indication: Product used for unknown indication
     Route: 048
  13. GAZYVA [Suspect]
     Active Substance: OBINUTUZUMAB
     Indication: Lymphocyte count increased
     Route: 065
     Dates: start: 20210415, end: 20210416
  14. TYLENOL [Concomitant]
     Active Substance: ACETAMINOPHEN
     Indication: Headache
  15. ALLOPURINOL [Concomitant]
     Active Substance: ALLOPURINOL
     Indication: Product used for unknown indication
     Route: 048
  16. SYNTHROID [Concomitant]
     Active Substance: LEVOTHYROXINE SODIUM
     Indication: Product used for unknown indication
     Route: 048
  17. CALCIUM CARBONATE\VITAMIN D [Concomitant]
     Active Substance: CALCIUM CARBONATE\VITAMIN D
     Indication: Product used for unknown indication
     Route: 048
  18. IBRUTINIB [Suspect]
     Active Substance: IBRUTINIB
     Indication: Lymphocytosis
     Route: 048
     Dates: start: 20151015, end: 20210414
  19. RITUXAN [Suspect]
     Active Substance: RITUXIMAB
     Indication: Product used for unknown indication
     Route: 065
  20. JAYPIRCA [Concomitant]
     Active Substance: PIRTOBRUTINIB
     Indication: Product used for unknown indication

REACTIONS (25)
  - Death [Fatal]
  - Nausea [Recovered/Resolved]
  - Familial hypocalciuric hypercalcaemia [Recovered/Resolved]
  - Diarrhoea [Unknown]
  - Decreased appetite [Recovered/Resolved]
  - Ear discomfort [Unknown]
  - Pancytopenia [Unknown]
  - Blood alkaline phosphatase increased [Unknown]
  - Cytopenia [Unknown]
  - Paranasal sinus hypersecretion [Unknown]
  - Transaminases increased [Unknown]
  - Nervousness [Recovered/Resolved]
  - Headache [Recovered/Resolved]
  - Lymphadenopathy [Unknown]
  - Febrile neutropenia [Recovered/Resolved]
  - Weight decreased [Unknown]
  - Lymphocytosis [Unknown]
  - Ear pain [Unknown]
  - Dizziness [Unknown]
  - Upper respiratory tract infection [Recovered/Resolved]
  - Chronic lymphocytic leukaemia [Unknown]
  - Fatigue [Unknown]
  - Contusion [Unknown]
  - Onychoclasis [Unknown]
  - Defaecation urgency [Unknown]

NARRATIVE: CASE EVENT DATE: 20210401
